FAERS Safety Report 7382068-6 (Version None)
Quarter: 2011Q1

REPORT INFORMATION
  Report Type: 
  Country: None (occurrence: None)
  Receive Date: 20110329
  Receipt Date: 20110316
  Transmission Date: 20110831
  Serious: Yes (Hospitalization, Other)
  Sender: FDA-Public Use
  Company Number: US-ELI_LILLY_AND_COMPANY-US201101004761

PATIENT
  Sex: Female
  Weight: 58.6 kg

DRUGS (12)
  1. LEVOXYL [Concomitant]
  2. PERI-COLACE [Concomitant]
  3. FORTEO [Suspect]
     Indication: OSTEOPOROSIS
     Dosage: 20 UG, QD
     Route: 058
     Dates: start: 20110113
  4. DEPAKOTE ER [Concomitant]
  5. ATROVENT [Concomitant]
  6. VITAMIN D [Concomitant]
  7. LACTULOSE [Concomitant]
  8. METOPROLOL TARTRATE [Concomitant]
  9. MULTI-VITAMINS [Concomitant]
  10. NASONEX [Concomitant]
  11. CITRUCEL [Concomitant]
  12. ENABLEX                            /01760402/ [Concomitant]

REACTIONS (6)
  - DISORIENTATION [None]
  - HYPONATRAEMIA [None]
  - ASTHENIA [None]
  - ALTERED STATE OF CONSCIOUSNESS [None]
  - INFECTION [None]
  - TREMOR [None]
